FAERS Safety Report 5333550-4 (Version None)
Quarter: 2007Q2

REPORT INFORMATION
  Report Type: 
  Country: None (occurrence: None)
  Receive Date: 20070524
  Receipt Date: 20070515
  Transmission Date: 20071010
  Serious: No
  Sender: FDA-Public Use
  Company Number: GB-JNJFOC-20070406387

PATIENT
  Sex: Male
  Weight: 72 kg

DRUGS (4)
  1. DURAGESIC-50 [Suspect]
     Indication: BACK PAIN
     Route: 062
  2. CO-CODAMOL [Concomitant]
     Dosage: THE PATIENT WAS TAKING 2 FOUR TIMES DAILY. THE TABLET STRENGTH WAS 8/500.
     Route: 065
  3. IRBESARTAN [Concomitant]
     Route: 065
  4. OMEPRAZOLE [Concomitant]
     Route: 065

REACTIONS (1)
  - INADEQUATE ANALGESIA [None]
